FAERS Safety Report 24795795 (Version 1)
Quarter: 2025Q1

REPORT INFORMATION
  Report Type: Spontaneous
  Country: CN (occurrence: CN)
  Receive Date: 20250101
  Receipt Date: 20250101
  Transmission Date: 20250409
  Serious: Yes (Hospitalization)
  Sender: UCB
  Company Number: CN-UCBSA-2024067768

PATIENT
  Age: 25 Year
  Sex: Female

DRUGS (2)
  1. LEVETIRACETAM [Suspect]
     Active Substance: LEVETIRACETAM
     Indication: Epilepsy
  2. LAMOTRIGINE [Suspect]
     Active Substance: LAMOTRIGINE
     Indication: Epilepsy

REACTIONS (3)
  - Diplopia [Not Recovered/Not Resolved]
  - Nystagmus [Not Recovered/Not Resolved]
  - Multiple-drug resistance [Unknown]

NARRATIVE: CASE EVENT DATE: 20220901
